FAERS Safety Report 9741742 (Version 1)
Quarter: 2013Q4

REPORT INFORMATION
  Report Type: Spontaneous
  Country: FR (occurrence: FR)
  Receive Date: 20131210
  Receipt Date: 20131210
  Transmission Date: 20140711
  Serious: Yes (Other)
  Sender: FDA-Public Use
  Company Number: FR-JNJFOC-20131202727

PATIENT
  Sex: Male

DRUGS (1)
  1. NICORETTE SPRAY [Suspect]
     Indication: SMOKING CESSATION THERAPY
     Route: 002
     Dates: start: 201310, end: 20131201

REACTIONS (1)
  - Oesophagitis [Recovering/Resolving]
